FAERS Safety Report 8359190-0 (Version None)
Quarter: 2012Q2

REPORT INFORMATION
  Report Type: 
  Country: None (occurrence: None)
  Receive Date: 20120511
  Receipt Date: 20120430
  Transmission Date: 20120825
  Serious: Yes (Hospitalization)
  Sender: FDA-Public Use
  Company Number: 2012AP001265

PATIENT
  Age: 61 Year
  Sex: Female

DRUGS (4)
  1. NAPROXEN [Concomitant]
  2. AZITHROMYCIN [Suspect]
     Indication: OFF LABEL USE
     Dosage: 2 TAB; QD; PO
     Route: 048
     Dates: start: 20120312, end: 20120316
  3. AZITHROMYCIN [Suspect]
     Indication: NECK PAIN
     Dosage: 2 TAB; QD; PO
     Route: 048
     Dates: start: 20120312, end: 20120316
  4. AZITHROMYCIN [Suspect]
     Indication: MUSCULOSKELETAL PAIN
     Dosage: 2 TAB; QD; PO
     Route: 048
     Dates: start: 20120312, end: 20120316

REACTIONS (6)
  - DYSPNOEA [None]
  - APTYALISM [None]
  - CHEST PAIN [None]
  - OFF LABEL USE [None]
  - DYSPHONIA [None]
  - MUCOUS MEMBRANE DISORDER [None]
